FAERS Safety Report 9597005 (Version 1)
Quarter: 2013Q4

REPORT INFORMATION
  Report Type: Spontaneous
  Country: US (occurrence: US)
  Receive Date: 20131004
  Receipt Date: 20131004
  Transmission Date: 20140711
  Serious: Yes (Other)
  Sender: FDA-Public Use
  Company Number: US-ACTAVIS-2013-17397

PATIENT
  Age: 6 Year
  Sex: Female

DRUGS (3)
  1. TOPOTECAN [Suspect]
     Indication: ANAPLASTIC ASTROCYTOMA
     Dosage: 0.02 ML/H,AT A CONC OF 0.0667 MG/ML
  2. TOPOTECAN [Suspect]
     Dosage: 0.06 ML/H, AT A CONC OF 0.0667 MG/ML
  3. DEXAMETHASONE [Concomitant]
     Indication: ANAPLASTIC ASTROCYTOMA
     Dosage: UNK
     Route: 065

REACTIONS (3)
  - Muscular weakness [Recovered/Resolved]
  - Dysphonia [Recovered/Resolved]
  - Karnofsky scale worsened [Recovering/Resolving]
